FAERS Safety Report 4885840-7 (Version None)
Quarter: 2006Q1

REPORT INFORMATION
  Report Type: 
  Country: None (occurrence: None)
  Receive Date: 20060120
  Receipt Date: 20060106
  Transmission Date: 20060701
  Serious: Yes (Other)
  Sender: FDA-Public Use
  Company Number: FRWYE281906JAN06

PATIENT
  Sex: Female

DRUGS (3)
  1. ENBREL [Suspect]
     Indication: RHEUMATOID ARTHRITIS
     Route: 058
     Dates: start: 20030101
  2. NOVATREX [Suspect]
     Indication: RHEUMATOID ARTHRITIS
     Dosage: 3 TABLETS WEEKLY, IN TOTAL
     Route: 048
  3. CORTANCYL [Concomitant]
     Dosage: 5 MG DAILY IN TOTAL
     Route: 048

REACTIONS (1)
  - TRANSAMINASES INCREASED [None]
